FAERS Safety Report 6561825-X (Version None)
Quarter: 2010Q1

REPORT INFORMATION
  Report Type: 
  Country: None (occurrence: None)
  Receive Date: 20100130
  Receipt Date: 20091030
  Transmission Date: 20100710
  Serious: No
  Sender: FDA-Public Use
  Company Number: US-ABBOTT-09P-163-0606460-00

PATIENT
  Sex: Female
  Weight: 88.53 kg

DRUGS (13)
  1. HUMIRA [Suspect]
     Indication: PSORIASIS
     Route: 058
     Dates: start: 20090901
  2. PREMARIN [Concomitant]
     Indication: OESTROGEN REPLACEMENT THERAPY
     Route: 048
  3. METHOTREXATE [Concomitant]
     Indication: PSORIASIS
     Dosage: 4
     Route: 048
  4. FOLIC ACID [Concomitant]
     Indication: VITAMIN SUPPLEMENTATION
     Route: 048
  5. CLARINEX [Concomitant]
     Indication: SEASONAL ALLERGY
     Route: 048
  6. ASACOL [Concomitant]
     Indication: COLITIS
  7. ENTOCORT EC [Concomitant]
     Indication: COLITIS
  8. EFFEXOR [Concomitant]
     Indication: ANXIETY
     Route: 048
  9. SINGULAIR [Concomitant]
     Indication: BRONCHITIS
  10. ADVAIR DISKUS 100/50 [Concomitant]
     Indication: BRONCHITIS
     Route: 055
  11. CALCIUM WITH VITAMIN D [Concomitant]
     Indication: MINERAL SUPPLEMENTATION
  12. TYLENOL (CAPLET) [Concomitant]
     Indication: ARTHRITIS
  13. BENADRYL [Concomitant]
     Indication: INSOMNIA

REACTIONS (3)
  - INCORRECT ROUTE OF DRUG ADMINISTRATION [None]
  - INJECTION SITE PAIN [None]
  - WOUND HAEMORRHAGE [None]
